FAERS Safety Report 5892135-1 (Version None)
Quarter: 2008Q3

REPORT INFORMATION
  Report Type: 
  Country: None (occurrence: None)
  Receive Date: 20080922
  Receipt Date: 20080910
  Transmission Date: 20090109
  Serious: Yes (Hospitalization)
  Sender: FDA-Public Use
  Company Number: FR-WYE-H06019108

PATIENT
  Sex: Male

DRUGS (12)
  1. CORDARONE [Suspect]
     Indication: VENTRICULAR TACHYCARDIA
     Route: 048
     Dates: end: 20080716
  2. PRAVASTATIN [Concomitant]
     Dosage: UNKNOWN
     Route: 048
  3. SINTROM [Concomitant]
     Dosage: UNKNOWN
     Route: 048
  4. FUROSEMIDE [Concomitant]
  5. DAFALGAN [Concomitant]
     Dosage: UNKNOWN
     Route: 048
  6. DAFALGAN [Concomitant]
     Dosage: UNKNOWN
     Route: 048
  7. RAMIPRIL [Concomitant]
     Dosage: UNKNOWN
     Route: 048
  8. PERMIXON [Concomitant]
     Dosage: UNKNOWN
     Route: 048
  9. ASPIRIN [Concomitant]
     Dosage: UNKNOWN
     Route: 048
  10. KAYEXALATE [Concomitant]
  11. CARDENSIEL [Suspect]
     Indication: ISCHAEMIC CARDIOMYOPATHY
     Route: 048
  12. ISOSORBIDE DINITRATE [Concomitant]
     Dosage: UNKNOWN
     Route: 048

REACTIONS (2)
  - BRADYCARDIA [None]
  - LOSS OF CONSCIOUSNESS [None]
